FAERS Safety Report 15548539 (Version 3)
Quarter: 2019Q4

REPORT INFORMATION
  Report Type: Report from Study
  Country: US (occurrence: US)
  Receive Date: 20181025
  Receipt Date: 20191211
  Transmission Date: 20200122
  Serious: Yes (Hospitalization)
  Sender: FDA-Public Use
  Company Number: PHHY2018US134905

PATIENT
  Sex: Male

DRUGS (1)
  1. ENTRESTO [Suspect]
     Active Substance: SACUBITRIL\VALSARTAN
     Indication: CARDIAC FAILURE
     Dosage: 50 MG (24 SACUBITRIL/26 VALSARTAN), BID
     Route: 065

REACTIONS (4)
  - Panic attack [Unknown]
  - Anxiety [Unknown]
  - Malaise [Unknown]
  - Coma [Unknown]
